FAERS Safety Report 5407681-4 (Version None)
Quarter: 2007Q3

REPORT INFORMATION
  Report Type: 
  Country: None (occurrence: None)
  Receive Date: 20070713
  Receipt Date: 20070524
  Transmission Date: 20080115
  Serious: No
  Sender: FDA-Public Use
  Company Number: 2007SP001957

PATIENT
  Age: 38 Year
  Sex: Male
  Weight: 74.7074 kg

DRUGS (9)
  1. LUNESTA [Suspect]
     Indication: INSOMNIA
     Dosage: 3 MG; ORAL, 6 MG; ORAL
     Route: 048
     Dates: start: 20070101, end: 20070101
  2. LUNESTA [Suspect]
     Indication: INSOMNIA
     Dosage: 3 MG; ORAL, 6 MG; ORAL
     Route: 048
     Dates: start: 20070524
  3. GEODON [Concomitant]
  4. DEPAKOTE [Concomitant]
  5. DETROL [Concomitant]
  6. HALDOL [Concomitant]
  7. ATIVAN [Concomitant]
  8. COGENTIN [Concomitant]
  9. VITAMIN CAP [Concomitant]

REACTIONS (1)
  - INSOMNIA [None]
